FAERS Safety Report 10384477 (Version 1)
Quarter: 2014Q1

REPORT INFORMATION
  Report Type: Spontaneous
  Country: US (occurrence: None)
  Receive Date: 20140306
  Receipt Date: 20140306
  Transmission Date: 20141002
  Serious: Yes (Other)
  Sender: FDA-Public Use
  Company Number: 163-21880-13081111

PATIENT
  Age: 66 Year
  Sex: Female
  Weight: 52.16 kg

DRUGS (11)
  1. REVLIMIB (LENALIDOMIDE) (10 MILLIGRAM, CAPSULES) [Suspect]
     Indication: PLASMA CELL MYELOMA
     Route: 048
     Dates: start: 20111230
  2. LEVOTHYROXINE [Concomitant]
  3. ASPIRIN (ACETYLSALICYLIC ACID) [Concomitant]
  4. ATENOLOL [Concomitant]
  5. FOLIC ACID [Concomitant]
  6. IRON [Concomitant]
  7. MULTIVITAMINS [Concomitant]
  8. OMEPRAZOLE [Concomitant]
  9. VALACYCLOVIR (VALACICLOVIR HYDROCHLORIDE) [Concomitant]
  10. VITAMIN C (ASCORBIC ACID) [Concomitant]
  11. TYLENOL (PARACETAMOL) [Concomitant]

REACTIONS (1)
  - Laboratory test abnormal [None]
